FAERS Safety Report 5746698-7 (Version None)
Quarter: 2008Q2

REPORT INFORMATION
  Report Type: 
  Country: None (occurrence: None)
  Receive Date: 20080520
  Receipt Date: 20080513
  Transmission Date: 20081010
  Serious: Yes (Death, Hospitalization)
  Sender: FDA-Public Use
  Company Number: 2008-01353

PATIENT
  Age: 73 Year
  Sex: Female

DRUGS (5)
  1. VELCADE [Suspect]
     Indication: MULTIPLE MYELOMA
     Dosage: 1.3 MG/M2
     Dates: start: 20050606
  2. DEXAMETHASONE TAB [Concomitant]
  3. LANSOPRAZOLE [Concomitant]
  4. ASPIRIN [Concomitant]
  5. FLUCONAZOLE [Concomitant]

REACTIONS (9)
  - AUTONOMIC NEUROPATHY [None]
  - DISEASE PROGRESSION [None]
  - FAECAL INCONTINENCE [None]
  - HYPERTENSION [None]
  - NEUROPATHY PERIPHERAL [None]
  - ORTHOSTATIC HYPOTENSION [None]
  - RASH [None]
  - URINARY INCONTINENCE [None]
  - URINARY RETENTION [None]
